FAERS Safety Report 5193041-0 (Version None)
Quarter: 2006Q4

REPORT INFORMATION
  Report Type: 
  Country: None (occurrence: None)
  Receive Date: 20061228
  Receipt Date: 20060308
  Transmission Date: 20070319
  Serious: No
  Sender: FDA-Public Use
  Company Number: US-GLAXOSMITHKLINE-A0596742A

PATIENT
  Age: 83 Year
  Sex: Female

DRUGS (9)
  1. AVODART [Suspect]
     Indication: DRUG USE FOR UNKNOWN INDICATION
     Dosage: 1CAP SINGLE DOSE
     Route: 048
     Dates: start: 20060308
  2. APRESOLINE [Concomitant]
  3. INDURA [Concomitant]
  4. UNKNOWN MEDICATION [Concomitant]
  5. MUCOMYST [Concomitant]
  6. NORVASC [Concomitant]
  7. PLAVIX [Concomitant]
  8. PRAVACHOL [Concomitant]
  9. PREVACID [Concomitant]

REACTIONS (1)
  - MEDICATION ERROR [None]
